FAERS Safety Report 5293476-1 (Version None)
Quarter: 2007Q2

REPORT INFORMATION
  Report Type: 
  Country: None (occurrence: None)
  Receive Date: 20070411
  Receipt Date: 20070405
  Transmission Date: 20071010
  Serious: Yes (Other)
  Sender: FDA-Public Use
  Company Number: JP-BAYER-200710243BYL

PATIENT

DRUGS (2)
  1. ASPIRIN [Suspect]
     Route: 048
  2. TICLOPIDINE HCL [Suspect]

REACTIONS (2)
  - CHOLESTASIS [None]
  - JAUNDICE [None]
